FAERS Safety Report 8903541 (Version 2)
Quarter: 2013Q1

REPORT INFORMATION
  Report Type: Spontaneous
  Country: FR (occurrence: FR)
  Receive Date: 20121112
  Receipt Date: 20130116
  Transmission Date: 20140127
  Serious: Yes (Hospitalization, Other)
  Sender: FDA-Public Use
  Company Number: FR-PFIZER INC-2012275752

PATIENT
  Age: 11 Year
  Sex: Female

DRUGS (12)
  1. ARACYTINE [Suspect]
     Indication: B-CELL TYPE ACUTE LEUKAEMIA
     Dosage: 30 MG, 1X/DAY
     Route: 037
     Dates: start: 20120905
  2. PIPERACILLIN/TAZOBACTAM [Suspect]
     Indication: INFECTION
     Dosage: UNK
     Route: 042
     Dates: start: 20120919, end: 20120921
  3. EVOLTRA [Suspect]
     Indication: B-CELL TYPE ACUTE LEUKAEMIA
     Dosage: 46 MG, 1X/DAY
     Route: 042
     Dates: start: 20120907, end: 20120911
  4. ETOPOPHOS [Suspect]
     Indication: B-CELL TYPE ACUTE LEUKAEMIA
     Dosage: 170 MG, 1X/DAY
     Route: 042
     Dates: start: 20120907, end: 20120909
  5. ENDOXAN [Suspect]
     Indication: B-CELL TYPE ACUTE LEUKAEMIA
     Dosage: 460 MG, 1X/DAY
     Route: 042
     Dates: start: 20120907, end: 20120909
  6. HYDROCORTISONE ^UPJOHN^ [Suspect]
     Indication: B-CELL TYPE ACUTE LEUKAEMIA
     Dosage: 15 MG, 1X/DAY
     Route: 037
     Dates: start: 20120905, end: 20120905
  7. ZOPHREN [Suspect]
     Indication: NAUSEA
     Dosage: UNK
     Route: 048
     Dates: start: 20120908
  8. PLITICAN [Suspect]
     Indication: NAUSEA
     Dosage: UNK
     Route: 042
     Dates: start: 20120907, end: 20120911
  9. DEXAMETHASONE [Suspect]
     Indication: NAUSEA
     Dosage: UNK
     Route: 042
     Dates: start: 20120907, end: 20120911
  10. GENTAMYCIN [Suspect]
     Indication: INFECTION
     Dosage: UNK
     Route: 042
     Dates: start: 20120919, end: 20120921
  11. PARACETAMOL [Suspect]
     Dosage: UNK
     Route: 042
  12. CYTOXAN [Suspect]
     Dosage: 200 MG, UNK
     Route: 042

REACTIONS (6)
  - Capillary leak syndrome [Recovered/Resolved]
  - Pericardial effusion [Recovered/Resolved]
  - Pleural effusion [Recovered/Resolved]
  - Face oedema [Recovered/Resolved]
  - Febrile bone marrow aplasia [Unknown]
  - Crohn^s disease [Unknown]
